FAERS Safety Report 17951324 (Version 1)
Quarter: 2020Q2

REPORT INFORMATION
  Report Type: Spontaneous
  Country: US (occurrence: US)
  Receive Date: 20200626
  Receipt Date: 20200626
  Transmission Date: 20200714
  Serious: No
  Sender: FDA-Public Use
  Company Number: US-UNIQUE PHARMACEUTICAL LABORATORIES-2020RIS00019

PATIENT
  Age: 79 Year
  Sex: Female

DRUGS (1)
  1. DICLOFENAC SODIUM DELAYED-RELEASE TABLETS USP 75MG [Suspect]
     Active Substance: DICLOFENAC SODIUM
     Dosage: UNK UNK, TWICE (^IN THE MORNING AND AT NIGHT AROUND 10 O^CLOCK^)
     Dates: start: 20200115, end: 20200115

REACTIONS (2)
  - Palpitations [Unknown]
  - Unevaluable event [Unknown]

NARRATIVE: CASE EVENT DATE: 20200116
